FAERS Safety Report 5610432-1 (Version None)
Quarter: 2008Q1

REPORT INFORMATION
  Report Type: 
  Country: None (occurrence: None)
  Receive Date: 20080128
  Receipt Date: 20080118
  Transmission Date: 20080703
  Serious: Yes (Death)
  Sender: FDA-Public Use
  Company Number: OPER20080010

PATIENT
  Age: 17 Year
  Sex: Male

DRUGS (4)
  1. OPANA ER [Suspect]
     Dosage: INTRA-NASAL
     Dates: end: 20071215
  2. XANAX [Suspect]
     Dosage: INTRA-NASAL
     Dates: end: 20071215
  3. ALCOHOL [Suspect]
     Dosage: ORAL
     Route: 048
     Dates: start: 20071214, end: 20071214
  4. MARIJUANA [Suspect]
     Dosage: INHALATION

REACTIONS (4)
  - DRUG TOXICITY [None]
  - INTENTIONAL DRUG MISUSE [None]
  - LOSS OF CONSCIOUSNESS [None]
  - SNORING [None]
